FAERS Safety Report 4963995-3 (Version None)
Quarter: 2006Q2

REPORT INFORMATION
  Report Type: 
  Country: None (occurrence: None)
  Receive Date: 20060405
  Receipt Date: 20050325
  Transmission Date: 20061013
  Serious: Yes (Hospitalization)
  Sender: FDA-Public Use
  Company Number: US-MERCK-0503USA04982

PATIENT
  Age: 69 Year
  Sex: Female
  Weight: 92 kg

DRUGS (14)
  1. VIOXX [Suspect]
     Route: 048
     Dates: start: 20040101, end: 20040101
  2. VICODIN [Concomitant]
     Route: 065
  3. ELAVIL [Concomitant]
     Route: 065
  4. GLYBURIDE [Concomitant]
     Route: 065
  5. INSULIN [Concomitant]
     Route: 065
  6. ATENOLOL [Concomitant]
     Route: 065
  7. ZOCOR [Concomitant]
     Route: 065
  8. NEURONTIN [Concomitant]
     Route: 065
  9. PRINIVIL [Concomitant]
     Route: 065
  10. PEPCID [Concomitant]
     Route: 065
  11. ECOTRIN [Concomitant]
     Route: 065
  12. VITAMINS (UNSPECIFIED) [Concomitant]
     Route: 065
  13. HYDRODIURIL [Concomitant]
     Route: 065
  14. PERI-COLACE [Concomitant]
     Route: 065

REACTIONS (25)
  - ABDOMINAL PAIN UPPER [None]
  - ACIDOSIS [None]
  - ACUTE MYOCARDIAL INFARCTION [None]
  - ANOREXIA [None]
  - BETA HAEMOLYTIC STREPTOCOCCAL INFECTION [None]
  - CHEST PAIN [None]
  - CORONARY ARTERY DISEASE [None]
  - DEHYDRATION [None]
  - DIARRHOEA [None]
  - DIVERTICULUM [None]
  - GLAUCOMA [None]
  - HAEMORRHOIDS [None]
  - HEADACHE [None]
  - HELICOBACTER INFECTION [None]
  - HYPOCALCAEMIA [None]
  - HYPOKALAEMIA [None]
  - HYPOVOLAEMIA [None]
  - IMPAIRED HEALING [None]
  - INJURY [None]
  - MALNUTRITION [None]
  - NORMOCHROMIC NORMOCYTIC ANAEMIA [None]
  - OSTEOPOROSIS [None]
  - RENAL FAILURE ACUTE [None]
  - TACHYCARDIA [None]
  - VOMITING [None]
